FAERS Safety Report 13025790 (Version 1)
Quarter: 2016Q4

REPORT INFORMATION
  Report Type: Spontaneous
  Country: US (occurrence: US)
  Receive Date: 20161214
  Receipt Date: 20161214
  Transmission Date: 20170207
  Serious: No
  Sender: FDA-Public Use
  Company Number: US-APOTEX-2015AP015515

PATIENT
  Sex: Male

DRUGS (1)
  1. FENTANYL TRANSDERMAL SYSTEM [Suspect]
     Active Substance: FENTANYL
     Indication: PAIN MANAGEMENT
     Dosage: 1 PATCH EVERY 3 DAYS
     Route: 062

REACTIONS (3)
  - Product adhesion issue [Unknown]
  - Skin ulcer [Not Recovered/Not Resolved]
  - Application site pruritus [Not Recovered/Not Resolved]
